FAERS Safety Report 8819121 (Version 5)
Quarter: 2012Q4

REPORT INFORMATION
  Report Type: 
  Country: JP (occurrence: JP)
  Receive Date: 20121001
  Receipt Date: 20121120
  Transmission Date: 20130627
  Serious: Yes (Other)
  Sender: FDA-Public Use
  Company Number: JP-JNJFOC-20120912435

PATIENT
  Age: 58 Year
  Sex: Female
  Weight: 52 kg

DRUGS (9)
  1. REMICADE [Suspect]
     Indication: PUSTULAR PSORIASIS
     Route: 042
     Dates: start: 20111117
  2. REMICADE [Suspect]
     Indication: PUSTULAR PSORIASIS
     Route: 042
     Dates: start: 20111007
  3. LOXONIN [Concomitant]
     Indication: ARTHRALGIA
     Route: 048
     Dates: start: 20110802, end: 20120819
  4. MUCOSTA [Concomitant]
     Indication: GASTRITIS
     Route: 048
     Dates: start: 20110802, end: 20120819
  5. ALLELOCK [Concomitant]
     Indication: PUSTULAR PSORIASIS
     Route: 048
     Dates: start: 20110811
  6. GASTER [Concomitant]
     Indication: GASTRITIS
     Route: 048
     Dates: start: 20110816, end: 20120819
  7. LENDORMIN D [Concomitant]
     Indication: INSOMNIA
     Route: 048
     Dates: start: 20110816, end: 20120213
  8. OXAROL [Concomitant]
     Indication: PUSTULAR PSORIASIS
     Route: 065
     Dates: start: 20110817
  9. RINDERON-VG [Concomitant]
     Indication: PUSTULAR PSORIASIS
     Route: 065
     Dates: start: 20111117

REACTIONS (2)
  - Diffuse alveolar damage [Recovered/Resolved]
  - Pyrexia [Recovered/Resolved]
